FAERS Safety Report 7202154-0 (Version None)
Quarter: 2010Q4

REPORT INFORMATION
  Report Type: 
  Country: None (occurrence: None)
  Receive Date: 20101229
  Receipt Date: 20101216
  Transmission Date: 20110411
  Serious: Yes (Other)
  Sender: FDA-Public Use
  Company Number: PHHY2010US61068

PATIENT
  Sex: Female

DRUGS (8)
  1. TASIGNA [Suspect]
     Indication: CHRONIC MYELOID LEUKAEMIA
     Dosage: 300 MG, BID
     Route: 048
     Dates: start: 20100907, end: 20100921
  2. COMPAZINE [Concomitant]
     Indication: GOUT
  3. ATIVAN [Concomitant]
  4. IMODIUM [Concomitant]
     Route: 048
  5. ASASANTIN [Concomitant]
     Route: 048
  6. AMBIEN [Concomitant]
     Route: 048
  7. TRIAMTERENE [Concomitant]
  8. WELLBUTRIN [Concomitant]

REACTIONS (6)
  - ALANINE AMINOTRANSFERASE INCREASED [None]
  - ASPARTATE AMINOTRANSFERASE INCREASED [None]
  - ELECTROCARDIOGRAM QT PROLONGED [None]
  - HYPOKALAEMIA [None]
  - LIVER FUNCTION TEST ABNORMAL [None]
  - URINARY TRACT INFECTION [None]
